FAERS Safety Report 23769340 (Version 1)
Quarter: 2024Q2

REPORT INFORMATION
  Report Type: Report from Study
  Country: US (occurrence: US)
  Receive Date: 20240422
  Receipt Date: 20240422
  Transmission Date: 20240716
  Serious: Yes (Hospitalization)
  Sender: FDA-Public Use
  Company Number: US-RECORDATI-2024002758

PATIENT

DRUGS (2)
  1. CARBAGLU [Suspect]
     Active Substance: CARGLUMIC ACID
     Indication: Hyperammonaemia
     Dosage: 200 MILLIGRAM, QD (100 MILLIGRAM HALF TABLET)
     Route: 048
     Dates: start: 20200723
  2. CARBAGLU [Suspect]
     Active Substance: CARGLUMIC ACID
     Dosage: 150 MILLIGRAM, Q6H
     Dates: start: 20240202

REACTIONS (14)
  - Lethargy [Recovering/Resolving]
  - Dehydration [Unknown]
  - Conjunctivitis bacterial [Unknown]
  - Pancytopenia [Unknown]
  - Transaminases increased [Unknown]
  - Blood alkaline phosphatase decreased [Unknown]
  - Hyperammonaemia [Recovered/Resolved]
  - Metabolic acidosis [Unknown]
  - Hyperglycaemia [Unknown]
  - Escherichia urinary tract infection [Recovering/Resolving]
  - Constipation [Unknown]
  - Blood potassium decreased [Unknown]
  - Blood magnesium decreased [Unknown]
  - Clonus [Unknown]

NARRATIVE: CASE EVENT DATE: 20240401
